FAERS Safety Report 7060604-7 (Version None)
Quarter: 2010Q4

REPORT INFORMATION
  Report Type: 
  Country: None (occurrence: None)
  Receive Date: 20101025
  Receipt Date: 20101015
  Transmission Date: 20110411
  Serious: Yes (Hospitalization)
  Sender: FDA-Public Use
  Company Number: JP-ASTRAZENECA-2010SE49996

PATIENT
  Age: 36 Year
  Sex: Female

DRUGS (3)
  1. SEROQUEL [Suspect]
     Route: 048
  2. HIBERNA [Suspect]
     Route: 048
  3. DEPAKENE [Suspect]
     Route: 048

REACTIONS (1)
  - DEPRESSED LEVEL OF CONSCIOUSNESS [None]
